FAERS Safety Report 9307909 (Version 1)
Quarter: 2013Q2

REPORT INFORMATION
  Report Type: Spontaneous
  Country: CA (occurrence: CA)
  Receive Date: 20130524
  Receipt Date: 20130524
  Transmission Date: 20140414
  Serious: Yes (Other)
  Sender: FDA-Public Use
  Company Number: PHHY2013CA051536

PATIENT
  Age: 68 Year
  Sex: Female
  Weight: 86 kg

DRUGS (2)
  1. FEMARA [Suspect]
     Dosage: 1 DF, EVERY DAY
     Route: 048
  2. XGEVA [Suspect]
     Dosage: 120 MG, EVERY 28 DAYS
     Route: 058

REACTIONS (6)
  - Fall [Recovering/Resolving]
  - Laceration [Recovering/Resolving]
  - Clavicle fracture [Recovering/Resolving]
  - Ankle fracture [Recovering/Resolving]
  - Radius fracture [Recovering/Resolving]
  - Anxiety [Recovering/Resolving]
